FAERS Safety Report 6997633-5 (Version None)
Quarter: 2010Q3

REPORT INFORMATION
  Report Type: 
  Country: None (occurrence: None)
  Receive Date: 20100918
  Receipt Date: 20091113
  Transmission Date: 20110219
  Serious: No
  Sender: FDA-Public Use
  Company Number: US-WYE-H12185409

PATIENT
  Sex: Female
  Weight: 56.75 kg

DRUGS (3)
  1. LYBREL [Suspect]
     Indication: ORAL CONTRACEPTION
     Route: 048
     Dates: start: 20091004
  2. ALLEGRA [Concomitant]
  3. SINGULAIR [Concomitant]

REACTIONS (2)
  - ABDOMINAL DISCOMFORT [None]
  - GASTROOESOPHAGEAL REFLUX DISEASE [None]
